FAERS Safety Report 5594493-4 (Version None)
Quarter: 2008Q1

REPORT INFORMATION
  Report Type: 
  Country: None (occurrence: None)
  Receive Date: 20080117
  Receipt Date: 20080114
  Transmission Date: 20080703
  Serious: Yes (Disabling, Other)
  Sender: FDA-Public Use
  Company Number: US-ALLERGAN-0705322US

PATIENT
  Age: 50 Year
  Sex: Female

DRUGS (2)
  1. BOTOX COSMETIC [Suspect]
     Indication: SKIN WRINKLING
     Dosage: UNK, SINGLE
     Route: 030
     Dates: start: 20070516, end: 20070516
  2. RESTYLANE [Concomitant]
     Indication: SKIN WRINKLING
     Dosage: UNK, UNKNOWN
     Route: 065
     Dates: start: 20070516, end: 20070516

REACTIONS (18)
  - ABASIA [None]
  - ANXIETY [None]
  - CONFUSIONAL STATE [None]
  - CONTUSION [None]
  - COORDINATION ABNORMAL [None]
  - DECREASED ACTIVITY [None]
  - DIZZINESS [None]
  - DRY MOUTH [None]
  - DYSARTHRIA [None]
  - FATIGUE [None]
  - FEAR [None]
  - FEELING ABNORMAL [None]
  - FEELING JITTERY [None]
  - INCOHERENT [None]
  - INJECTION SITE SWELLING [None]
  - INSOMNIA [None]
  - PARALYSIS [None]
  - POISONING [None]
